FAERS Safety Report 4905048-6 (Version None)
Quarter: 2006Q1

REPORT INFORMATION
  Report Type: 
  Country: None (occurrence: None)
  Receive Date: 20060208
  Receipt Date: 20051108
  Transmission Date: 20060701
  Serious: No
  Sender: FDA-Public Use
  Company Number: US-GLAXOSMITHKLINE-A0581438A

PATIENT
  Age: 46 Year
  Sex: Female

DRUGS (9)
  1. PAROXETINE HCL [Suspect]
     Indication: DEPRESSION
     Dosage: 10MG PER DAY
     Route: 048
     Dates: start: 20051025
  2. KLONOPIN [Concomitant]
  3. CLONIDINE [Concomitant]
  4. ATIVAN [Concomitant]
  5. PULMICORT [Concomitant]
  6. ALBUTEROL [Concomitant]
  7. NEBULIZER [Concomitant]
  8. MAXALT [Concomitant]
  9. FIORICET [Concomitant]

REACTIONS (4)
  - BALANCE DISORDER [None]
  - DEPRESSION [None]
  - FATIGUE [None]
  - MENTAL IMPAIRMENT [None]
